FAERS Safety Report 8226864-1 (Version None)
Quarter: 2012Q1

REPORT INFORMATION
  Report Type: 
  Country: None (occurrence: None)
  Receive Date: 20120322
  Receipt Date: 20120309
  Transmission Date: 20120608
  Serious: Yes (Hospitalization)
  Sender: FDA-Public Use
  Company Number: US-BAYER-2012-025455

PATIENT
  Age: 19 Year
  Sex: Female

DRUGS (1)
  1. YASMIN [Suspect]
     Dosage: UNK

REACTIONS (5)
  - GALLBLADDER NON-FUNCTIONING [None]
  - VOMITING [None]
  - BACK PAIN [None]
  - ABDOMINAL PAIN UPPER [None]
  - SCAR [None]
